FAERS Safety Report 9020096 (Version 1)
Quarter: 2013Q1

REPORT INFORMATION
  Report Type: Spontaneous
  Country: US (occurrence: US)
  Receive Date: 20130119
  Receipt Date: 20130119
  Transmission Date: 20140127
  Serious: No
  Sender: FDA-Public Use
  Company Number: US-ALLERGAN-1210698US

PATIENT
  Age: 55 None
  Sex: Female

DRUGS (4)
  1. BOTOX COSMETIC [Suspect]
     Indication: SKIN WRINKLING
     Dosage: 29 UNITS, SINGLE
     Dates: start: 20120711, end: 20120711
  2. BOTOX COSMETIC [Suspect]
     Indication: SKIN WRINKLING
     Dosage: 10 UNITS, SINGLE
     Route: 030
     Dates: start: 20120711, end: 20120711
  3. BOTOX COSMETIC [Suspect]
     Dosage: 5 UNITS, SINGLE
     Route: 030
     Dates: start: 20120711, end: 20120711
  4. BOTOX COSMETIC [Suspect]
     Dosage: 14 UNITS, SINGLE
     Route: 030
     Dates: start: 20120711, end: 20120711

REACTIONS (5)
  - Wrong technique in drug usage process [Unknown]
  - Wrong technique in drug usage process [Unknown]
  - Facial paresis [Not Recovered/Not Resolved]
  - Facial paresis [Not Recovered/Not Resolved]
  - Incorrect dose administered [Unknown]
